FAERS Safety Report 8426738-7 (Version None)
Quarter: 2012Q2

REPORT INFORMATION
  Report Type: 
  Country: None (occurrence: None)
  Receive Date: 20120611
  Receipt Date: 20120530
  Transmission Date: 20120825
  Serious: Yes (Other)
  Sender: FDA-Public Use
  Company Number: PHHY2012FR041694

PATIENT
  Sex: Male
  Weight: 80 kg

DRUGS (6)
  1. AFINITOR [Suspect]
     Indication: RENAL CANCER
     Dosage: 10 MG, QD
     Route: 048
     Dates: start: 20111201, end: 20111227
  2. ENALAPRIL MALEATE [Suspect]
  3. SUTENT [Concomitant]
  4. AFINITOR [Suspect]
     Dosage: 5 MG, QD
     Route: 048
     Dates: start: 20120116
  5. ENALAPRIL MALEATE [Suspect]
     Dosage: 10 MG, DAILY (IN THE MORNING)
  6. CETIRIZINE [Concomitant]

REACTIONS (18)
  - TENDON RUPTURE [None]
  - ROTATOR CUFF SYNDROME [None]
  - RASH [None]
  - MALAISE [None]
  - BLOOD PRESSURE SYSTOLIC INCREASED [None]
  - NEOPLASM PROGRESSION [None]
  - HAEMORRHAGE [None]
  - VOMITING [None]
  - DIARRHOEA [None]
  - NEOPLASM MALIGNANT [None]
  - COUGH [None]
  - SCAPULA FRACTURE [None]
  - FALL [None]
  - PERIARTHRITIS [None]
  - JOINT INJURY [None]
  - OEDEMA PERIPHERAL [None]
  - BACK PAIN [None]
  - DYSLIPIDAEMIA [None]
